FAERS Safety Report 20414237 (Version 2)
Quarter: 2022Q1

REPORT INFORMATION
  Report Type: Spontaneous
  Country: US (occurrence: US)
  Receive Date: 20220202
  Receipt Date: 20220209
  Transmission Date: 20220423
  Serious: Yes (Hospitalization, Other)
  Sender: FDA-Public Use
  Company Number: US-SUN PHARMACEUTICAL INDUSTRIES LTD-2022R1-324664

PATIENT
  Age: 54 Year
  Sex: Female

DRUGS (1)
  1. ZOLPIDEM [Suspect]
     Active Substance: ZOLPIDEM TARTRATE
     Indication: Sleep disorder
     Dosage: 90-100 MG PER NIGHT
     Route: 065

REACTIONS (4)
  - Seizure [Unknown]
  - Drug dependence [Unknown]
  - Drug abuse [Unknown]
  - Product administration interrupted [Unknown]
